FAERS Safety Report 24086441 (Version 1)
Quarter: 2024Q3

REPORT INFORMATION
  Report Type: Spontaneous
  Country: ID (occurrence: None)
  Receive Date: 20240712
  Receipt Date: 20240712
  Transmission Date: 20241016
  Serious: Yes (Death, Life-Threatening, Other)
  Sender: ASTRAZENECA
  Company Number: 2024A159008

PATIENT
  Age: 36 Year
  Sex: Male

DRUGS (3)
  1. IMFINZI [Suspect]
     Active Substance: DURVALUMAB
     Indication: Small cell lung cancer
  2. CARBOPLATIN [Concomitant]
     Active Substance: CARBOPLATIN
  3. ETOPOSIDE [Concomitant]
     Active Substance: ETOPOSIDE

REACTIONS (9)
  - Respiratory failure [Fatal]
  - Sepsis [Fatal]
  - Spinal compression fracture [Unknown]
  - Spinal stenosis [Unknown]
  - Metastases to spine [Unknown]
  - Malignant neoplasm progression [Unknown]
  - Pancreatitis [Unknown]
  - Pneumonitis [Unknown]
  - Myalgia [Unknown]

NARRATIVE: CASE EVENT DATE: 20240326
